FAERS Safety Report 24292281 (Version 1)
Quarter: 2024Q3

REPORT INFORMATION
  Report Type: Spontaneous
  Country: US (occurrence: None)
  Receive Date: 20240906
  Receipt Date: 20240906
  Transmission Date: 20241016
  Serious: No
  Sender: DOMPE FARMACEUTICI
  Company Number: US-FARMAPROD-202307-2244

PATIENT
  Sex: Female

DRUGS (20)
  1. OXERVATE [Suspect]
     Active Substance: CENEGERMIN-BKBJ
     Indication: Neurotrophic keratopathy
     Route: 047
     Dates: start: 20230717
  2. OXERVATE [Suspect]
     Active Substance: CENEGERMIN-BKBJ
  3. OXERVATE [Suspect]
     Active Substance: CENEGERMIN-BKBJ
  4. FUROSEMIDE [Concomitant]
     Active Substance: FUROSEMIDE
  5. PREDNISONE [Concomitant]
     Active Substance: PREDNISONE
  6. LOSARTAN POTASSIUM [Concomitant]
     Active Substance: LOSARTAN POTASSIUM
  7. HYDROCHLOROTHIAZIDE [Concomitant]
     Active Substance: HYDROCHLOROTHIAZIDE
  8. AMLODIPINE BESYLATE [Concomitant]
     Active Substance: AMLODIPINE BESYLATE
  9. HYDROXYCHLOROQUINE SULFATE [Concomitant]
     Active Substance: HYDROXYCHLOROQUINE SULFATE
  10. PANTOPRAZOLE SODIUM [Concomitant]
     Active Substance: PANTOPRAZOLE SODIUM
  11. ACETAMINOPHEN\HYDROCODONE [Concomitant]
     Active Substance: ACETAMINOPHEN\HYDROCODONE
  12. MOXIFLOXACIN [Concomitant]
     Active Substance: MOXIFLOXACIN
  13. PREDNISOLONE ACETATE [Concomitant]
     Active Substance: PREDNISOLONE ACETATE
  14. RESTASIS [Concomitant]
     Active Substance: CYCLOSPORINE
  15. VITAMIN C [Concomitant]
     Active Substance: ASCORBIC ACID
  16. CALCIUM [Concomitant]
     Active Substance: CALCIUM
     Dosage: 500 (1250)
  17. VITAMIN D3 [Concomitant]
     Active Substance: CHOLECALCIFEROL
  18. BIOTIN [Concomitant]
     Active Substance: BIOTIN
  19. PYRIDOXINE [Concomitant]
     Active Substance: PYRIDOXINE
  20. POTASSIUM [Concomitant]
     Active Substance: POTASSIUM
     Dosage: 595 (99) MG

REACTIONS (2)
  - Eye pain [Not Recovered/Not Resolved]
  - Product dose omission issue [Unknown]
